FAERS Safety Report 7727414-6 (Version None)
Quarter: 2011Q3

REPORT INFORMATION
  Report Type: 
  Country: None (occurrence: None)
  Receive Date: 20110902
  Receipt Date: 20110831
  Transmission Date: 20111222
  Serious: Yes (Death, Life-Threatening, Hospitalization)
  Sender: FDA-Public Use
  Company Number: SE-PFIZER INC-2010004198

PATIENT
  Age: 62 Year
  Sex: Female
  Weight: 90 kg

DRUGS (11)
  1. OXAZEPAM [Concomitant]
     Indication: DEPRESSION
     Dosage: 10 MG, AS NEEDED
     Dates: start: 20080319
  2. ANAFRANIL [Concomitant]
     Indication: DEPRESSION
     Dosage: 25 MG, 2X/DAY
     Route: 048
     Dates: start: 20080513, end: 20091029
  3. SIMVASTATIN [Concomitant]
     Indication: HYPERLIPIDAEMIA
     Dosage: 40 MG, 1X/DAY
     Route: 048
     Dates: start: 20060512, end: 20100514
  4. LYRICA [Concomitant]
     Indication: ANXIETY
     Dosage: 50 MG, 3X/DAY
     Route: 048
     Dates: start: 20080415, end: 20091029
  5. LEVOTHYROXINE SODIUM [Concomitant]
     Dosage: 50 UG, 1X/DAY
     Dates: start: 20080129
  6. HYDROCORTISONE ^NYCOMED^ [Concomitant]
     Indication: ADRENAL INSUFFICIENCY
     Dosage: 10 MG, 2X/DAY
     Dates: start: 20070615, end: 20100520
  7. ANAFRANIL [Concomitant]
     Indication: DEPRESSION
     Dosage: 75 MG, 1X/DAY
     Route: 048
     Dates: start: 20050314, end: 20091029
  8. SOMATROPIN [Suspect]
     Indication: HYPOPITUITARISM
     Dosage: 0.4 MG, 1X/DAY
     Route: 058
     Dates: start: 20081112, end: 20090615
  9. ATACAND [Concomitant]
     Indication: HYPERTENSION
     Dosage: 16 MG, 1X/DAY
     Route: 048
     Dates: start: 20080707, end: 20100121
  10. MINIRIN ^AVENTIS PHARMA^ [Concomitant]
     Indication: DIABETES INSIPIDUS
     Dosage: 60 UG, 1X/DAY, AT NIGHT
     Dates: start: 20070821
  11. NITROLINGUAL [Concomitant]
     Indication: ANGINA PECTORIS
     Dosage: 0.4 MG, AS NEEDED
     Dates: start: 20080707, end: 20091209

REACTIONS (1)
  - RECTAL CANCER STAGE III [None]
